FAERS Safety Report 8811901 (Version 1)
Quarter: 2012Q4

REPORT INFORMATION
  Report Type: Spontaneous
  Country: GB (occurrence: None)
  Receive Date: 20120924
  Receipt Date: 20120924
  Transmission Date: 20130627
  Serious: Yes (Hospitalization)
  Sender: FDA-Public Use
  Company Number: DSA_59766_2012

PATIENT
  Age: 91 Year
  Sex: Female

DRUGS (13)
  1. METRONIDAZOLE (METRONIDAZOLE) [Suspect]
     Indication: ANTIBIOTIC THERAPY
     Route: 048
     Dates: start: 20110322, end: 20110329
  2. PHENOXYMETHYLPENICILLIN [Suspect]
     Route: 048
     Dates: start: 20101011, end: 20101018
  3. FLUCLOXACILLIN [Suspect]
     Dosage: (DF Oral)
     Route: 048
     Dates: start: 2010, end: 2010
  4. FLUCLOXACILLIN [Suspect]
     Route: 048
     Dates: start: 20101221, end: 20101228
  5. FLUCLOXACILLIN [Suspect]
     Route: 048
     Dates: end: 20111018
  6. TRIMETHOPRIM [Suspect]
     Route: 048
     Dates: start: 20110104, end: 20110110
  7. LANSOPRAZOLE [Suspect]
     Route: 048
  8. FUROSEMIDE [Concomitant]
  9. LISINOPRIL [Concomitant]
  10. ASPIRIN [Concomitant]
  11. DALTEPARIN [Concomitant]
  12. SPIRONOLACTONE [Concomitant]
  13. SANDO K /00032402/ [Concomitant]

REACTIONS (2)
  - Diarrhoea [None]
  - Clostridium test positive [None]
